FAERS Safety Report 9572320 (Version 2)
Quarter: 2013Q4

REPORT INFORMATION
  Report Type: Spontaneous
  Country: JP (occurrence: JP)
  Receive Date: 20131001
  Receipt Date: 20131001
  Transmission Date: 20140711
  Serious: Yes (Hospitalization, Other)
  Sender: FDA-Public Use
  Company Number: PHHY2011JP88364

PATIENT
  Age: 23 Year
  Sex: Female

DRUGS (7)
  1. CICLOSPORIN [Suspect]
     Indication: PROPHYLAXIS AGAINST GRAFT VERSUS HOST DISEASE
  2. METHOTREXATE [Suspect]
     Indication: PROPHYLAXIS AGAINST GRAFT VERSUS HOST DISEASE
     Dosage: 10 MG/M2, UNK
  3. METHOTREXATE [Suspect]
     Dosage: 7 MG/M2, UNK
  4. METHOTREXATE [Suspect]
     Dosage: 7 MG/M2, UNK
  5. LEVOFLOXACIN [Concomitant]
     Dosage: 500 MG, UNK
  6. ITRACONAZOLE [Concomitant]
     Dosage: 200 MG, UNK
  7. ACYCLOVIR [Concomitant]
     Dosage: 200-1000 MG/DAY

REACTIONS (7)
  - Sinusitis fungal [Recovered/Resolved]
  - Pyrexia [Recovered/Resolved]
  - Device related infection [Recovered/Resolved]
  - Eye pain [Recovered/Resolved]
  - Eye swelling [Recovered/Resolved]
  - Stomatitis [Recovered/Resolved]
  - Neutropenia [Recovered/Resolved]
